FAERS Safety Report 6072279-4 (Version None)
Quarter: 2009Q1

REPORT INFORMATION
  Report Type: 
  Country: None (occurrence: None)
  Receive Date: 20090206
  Receipt Date: 20090206
  Transmission Date: 20090719
  Serious: Yes (Other)
  Sender: FDA-Public Use
  Company Number: None

PATIENT
  Sex: Female
  Weight: 73.4827 kg

DRUGS (2)
  1. CYMBALTA [Suspect]
     Indication: ATTENTION DEFICIT/HYPERACTIVITY DISORDER
     Dosage: 60MGS.  ONCE DAILY PO
     Route: 048
     Dates: start: 20020301, end: 20090104
  2. CYMBALTA [Suspect]
     Indication: GENERALISED ANXIETY DISORDER
     Dosage: 60MGS.  ONCE DAILY PO
     Route: 048
     Dates: start: 20020301, end: 20090104

REACTIONS (7)
  - DRUG WITHDRAWAL SYNDROME [None]
  - EMOTIONAL DISORDER [None]
  - HEPATIC STEATOSIS [None]
  - IMPAIRED WORK ABILITY [None]
  - MALAISE [None]
  - STRESS [None]
  - VIRAL INFECTION [None]
